FAERS Safety Report 9369726 (Version 1)
Quarter: 2013Q2

REPORT INFORMATION
  Report Type: Spontaneous
  Country: US (occurrence: US)
  Receive Date: 20130626
  Receipt Date: 20130626
  Transmission Date: 20140414
  Serious: No
  Sender: FDA-Public Use
  Company Number: US-JNJFOC-20130522147

PATIENT
  Age: 16 Year
  Sex: Female

DRUGS (8)
  1. INVEGA [Suspect]
     Indication: PRODUCT USED FOR UNKNOWN INDICATION
     Route: 048
  2. INVEGA [Suspect]
     Indication: PRODUCT USED FOR UNKNOWN INDICATION
     Route: 048
  3. INVEGA [Suspect]
     Indication: PRODUCT USED FOR UNKNOWN INDICATION
     Route: 048
  4. METFORMIN [Concomitant]
     Indication: WEIGHT INCREASED
     Route: 065
  5. TENAX [Concomitant]
     Route: 065
  6. STRATTERA [Concomitant]
     Route: 065
  7. CLONAPIN [Concomitant]
     Route: 065
  8. ZOLOFT [Concomitant]
     Route: 065

REACTIONS (2)
  - Blood prolactin increased [Not Recovered/Not Resolved]
  - Galactorrhoea [Not Recovered/Not Resolved]
